FAERS Safety Report 8518274-4 (Version None)
Quarter: 2012Q3

REPORT INFORMATION
  Report Type: 
  Country: None (occurrence: None)
  Receive Date: 20120718
  Receipt Date: 20120522
  Transmission Date: 20120928
  Serious: No
  Sender: FDA-Public Use
  Company Number: US-BRISTOL-MYERS SQUIBB COMPANY-16301558

PATIENT
  Age: 74 Year
  Sex: Female
  Weight: 77 kg

DRUGS (19)
  1. IRON [Concomitant]
  2. ALPRAZOLAM [Concomitant]
  3. ZANTAC [Concomitant]
  4. VIIBRYD [Concomitant]
  5. GABAPENTIN [Concomitant]
  6. HYDROCHLOROTHIAZIDE [Concomitant]
  7. FUROSEMIDE [Concomitant]
  8. ALLEGRA [Concomitant]
  9. OMEPRAZOLE [Concomitant]
  10. COUMADIN [Suspect]
     Indication: ATRIAL FIBRILLATION
     Dosage: DOSAGE:5DAYS A WEEK COUMADIN 5MG ONCE DAILY FOR 2 DAYS
  11. MECLIZINE [Concomitant]
  12. METOPROLOL SUCCINATE [Concomitant]
  13. SINGULAIR [Concomitant]
  14. DIOVAN [Concomitant]
  15. FLUTICASONE PROPIONATE [Concomitant]
  16. LOMOTIL [Concomitant]
  17. LEVOFLOXACIN [Suspect]
  18. VITAMIN D [Concomitant]
  19. SUCRALFATE [Concomitant]

REACTIONS (4)
  - ALOPECIA [None]
  - TINNITUS [None]
  - URINARY TRACT INFECTION [None]
  - INTERNATIONAL NORMALISED RATIO ABNORMAL [None]
